FAERS Safety Report 8732378 (Version 3)
Quarter: 2013Q4

REPORT INFORMATION
  Report Type: Report from Study
  Country: US (occurrence: US)
  Receive Date: 20120820
  Receipt Date: 20131115
  Transmission Date: 20140711
  Serious: Yes (Hospitalization)
  Sender: FDA-Public Use
  Company Number: US-GLAXOSMITHKLINE-Z0016665A

PATIENT
  Age: 72 Year
  Sex: Female
  Weight: 64.9 kg

DRUGS (50)
  1. LAPATINIB [Suspect]
     Indication: BREAST CANCER METASTATIC
     Dosage: 1000MG PER DAY
     Route: 048
     Dates: start: 20120724, end: 20120808
  2. TRASTUZUMAB [Suspect]
     Indication: BREAST CANCER METASTATIC
     Dosage: 6MGK EVERY 3 WEEKS
     Route: 042
     Dates: start: 20120724, end: 20120724
  3. ALBUTEROL [Concomitant]
     Indication: DYSPNOEA
     Dosage: 2.5MG TWELVE TIMES PER DAY
     Route: 055
     Dates: start: 20120813, end: 20120821
  4. ALBUTEROL [Concomitant]
     Indication: DYSPNOEA
     Dosage: 2.5MG FOUR TIMES PER DAY
     Route: 055
     Dates: start: 20120813, end: 20120821
  5. ACETAMINOPHEN (TYLENOL) [Concomitant]
     Indication: OROPHARYNGEAL PAIN
     Dosage: 975MG SINGLE DOSE
     Route: 048
     Dates: start: 20120811, end: 20120811
  6. PIPERACILLIN + TAZOBACTAM [Concomitant]
     Indication: PERITONSILLAR ABSCESS
     Dosage: 3.375MG AS REQUIRED
     Route: 042
     Dates: start: 20120811, end: 20120821
  7. SODIUM CHLORIDE [Concomitant]
     Indication: FLUID REPLACEMENT
     Dosage: 1000ML SINGLE DOSE
     Route: 042
     Dates: start: 20120811, end: 20120811
  8. SODIUM CHLORIDE 0.9% [Concomitant]
     Indication: FLUID REPLACEMENT
     Dosage: 500ML SINGLE DOSE
     Route: 042
     Dates: start: 20120811, end: 20120811
  9. METOPROLOL [Concomitant]
     Indication: ATRIAL FIBRILLATION
     Dosage: 15MG SINGLE DOSE
     Route: 042
     Dates: start: 20120811, end: 20120811
  10. SODIUM CHLORIDE 0.9% [Concomitant]
     Indication: FLUID REPLACEMENT
     Dosage: 1000ML AS REQUIRED
     Route: 042
     Dates: start: 20120811, end: 20120821
  11. VANCOMYCIN [Concomitant]
     Indication: PERITONSILLAR ABSCESS
     Dosage: 1G SINGLE DOSE
     Route: 042
     Dates: start: 20120811, end: 20120811
  12. MAGNESIUM SULFATE [Concomitant]
     Indication: DEHYDRATION
     Dosage: 2G TWENTY FOUR TIMES PER DAY
     Route: 042
     Dates: start: 20120811, end: 20120811
  13. POTASSIUM PHOSPHATE [Concomitant]
     Indication: DEHYDRATION
     Dosage: 30MMOL SINGLE DOSE
     Route: 042
     Dates: start: 20120811, end: 20120811
  14. SODIUM CHLORIDE 0.9% [Concomitant]
     Indication: FLUID REPLACEMENT
     Dosage: 750ML SINGLE DOSE
     Route: 042
     Dates: start: 20120811, end: 20120811
  15. AMIODARONE [Concomitant]
     Indication: ATRIAL FIBRILLATION
     Dosage: 150MG SINGLE DOSE
     Route: 042
     Dates: start: 20120811, end: 20120811
  16. DIGOXIN [Concomitant]
     Indication: ATRIAL FIBRILLATION
     Dosage: .25MG FOUR TIMES PER DAY
     Route: 042
     Dates: start: 20120812, end: 20120812
  17. DIPHENHYDRAMINE [Concomitant]
     Indication: PROPHYLAXIS
     Dosage: 25MG SINGLE DOSE
     Route: 042
     Dates: start: 20120812, end: 20120812
  18. SODIUM PHOSPHATE [Concomitant]
     Indication: DEHYDRATION
     Dosage: 15MMOL SINGLE DOSE
     Route: 042
     Dates: start: 20120812, end: 20120812
  19. FENTANYL [Concomitant]
     Indication: OROPHARYNGEAL PAIN
     Dosage: 100MCG PER DAY
     Route: 042
     Dates: start: 20120812, end: 20120812
  20. FUROSEMIDE [Concomitant]
     Indication: PROPHYLAXIS
     Dosage: 20MG SINGLE DOSE
     Route: 042
     Dates: start: 20120812, end: 20120812
  21. MAGNESIUM SULFATE [Concomitant]
     Indication: DEHYDRATION
     Dosage: 2G SINGLE DOSE
     Route: 042
     Dates: start: 20120813, end: 20120813
  22. POTASSIUM CHLORIDE [Concomitant]
     Indication: DEHYDRATION
     Dosage: 20MEQ SINGLE DOSE
     Route: 042
     Dates: start: 20120813, end: 20120813
  23. FUROSEMIDE [Concomitant]
     Indication: PROPHYLAXIS
     Dosage: 20MG SINGLE DOSE
     Route: 042
     Dates: start: 20120813, end: 20120813
  24. VANCOMYCIN [Concomitant]
     Indication: PERITONSILLAR ABSCESS
     Dosage: 1250MG SINGLE DOSE
     Route: 042
     Dates: start: 20120813, end: 20120813
  25. POTASSIUM CHLORIDE [Concomitant]
     Indication: DEHYDRATION
     Dosage: 20MEQ TWENTY FOUR TIMES PER DAY
     Route: 042
     Dates: start: 20120814, end: 20120814
  26. IPRATROPIUM [Concomitant]
     Indication: ENDOTRACHEAL INTUBATION
     Dosage: 500MCG SIX TIMES PER DAY
     Route: 055
     Dates: start: 20120813, end: 20120821
  27. ENOXAPARIN [Concomitant]
     Indication: THROMBOSIS PROPHYLAXIS
     Dosage: 30MG PER DAY
     Route: 058
     Dates: start: 20120813, end: 20120813
  28. CHLORHEXIDINE [Concomitant]
     Indication: ENDOTRACHEAL INTUBATION
     Dosage: 15ML TWICE PER DAY
     Route: 048
     Dates: start: 20120813, end: 20120821
  29. DEXAMETHASON [Concomitant]
     Indication: INFLAMMATION
     Dosage: 4MG FOUR TIMES PER DAY
     Route: 042
     Dates: start: 20120811, end: 20120821
  30. MORPHINE [Concomitant]
     Indication: PAIN
     Dosage: 2MG SIX TIMES PER DAY
     Route: 042
     Dates: start: 20120811, end: 20120821
  31. FAMOTIDINE [Concomitant]
     Indication: PROPHYLAXIS
     Dosage: 20MG TWICE PER DAY
     Route: 042
     Dates: start: 20120811, end: 20120821
  32. AMIODARONE [Concomitant]
     Indication: ATRIAL FIBRILLATION
     Dosage: 900MG CONTINUOUS
     Route: 042
     Dates: start: 20120811, end: 20120816
  33. NOREPINEPHRINE [Concomitant]
     Indication: HYPOTENSION
     Dosage: 8MG CONTINUOUS
     Route: 042
     Dates: start: 20120812, end: 20120821
  34. PROPOFOL [Concomitant]
     Indication: ENDOTRACHEAL INTUBATION
     Dosage: 1000MG CONTINUOUS
     Route: 042
     Dates: start: 20120813, end: 20120821
  35. FENTANYL [Concomitant]
     Indication: PAIN
     Dosage: 2500MCG CONTINUOUS
     Route: 042
     Dates: start: 20120813, end: 20120821
  36. ENOXAPARIN [Concomitant]
     Indication: THROMBOSIS PROPHYLAXIS
     Dosage: 40MG PER DAY
     Route: 058
     Dates: start: 20120814, end: 20120821
  37. FENTANYL [Concomitant]
     Indication: ENDOTRACHEAL INTUBATION
     Dosage: 100MCG SINGLE DOSE
     Route: 042
     Dates: start: 20120815, end: 20120815
  38. FUROSEMIDE [Concomitant]
     Indication: OEDEMA
     Dosage: 40MG TWICE PER DAY
     Route: 042
     Dates: start: 20120814, end: 20120821
  39. NICOTINE PATCH [Concomitant]
     Indication: NICOTINE DEPENDENCE
     Dosage: 21MG WEEKLY
     Route: 061
     Dates: start: 20120814, end: 20120821
  40. VANCOMYCIN [Concomitant]
     Indication: PERITONSILLAR ABSCESS
     Dosage: 1000MCG TWICE PER DAY
     Route: 042
     Dates: start: 20120814, end: 20120821
  41. VERSED [Concomitant]
     Indication: ENDOTRACHEAL INTUBATION
     Dosage: 5MG SINGLE DOSE
     Route: 042
     Dates: start: 20120815, end: 20120815
  42. BISACODYL [Concomitant]
     Indication: CONSTIPATION
     Dosage: 1SUP PER DAY
     Route: 054
     Dates: start: 20120814, end: 20120821
  43. HUMALOG [Concomitant]
     Indication: BLOOD GLUCOSE INCREASED
     Dosage: 2UNIT BEFORE MEALS
     Route: 058
     Dates: start: 20120814, end: 20120821
  44. INSULIN LISPRO [Concomitant]
     Indication: BLOOD GLUCOSE INCREASED
     Dosage: 2UNIT AS REQUIRED
     Route: 058
     Dates: start: 20120814, end: 20120821
  45. ROCURONIUM [Concomitant]
     Indication: ENDOTRACHEAL INTUBATION
     Dosage: 50MG SINGLE DOSE
     Route: 042
     Dates: start: 20120815, end: 20120821
  46. DOCUSATE SODIUM + SENNOSIDES [Concomitant]
     Indication: CONSTIPATION PROPHYLAXIS
     Dosage: 1TAB TWICE PER DAY
     Route: 048
     Dates: start: 20120815, end: 20120821
  47. AMIODARONE [Concomitant]
     Indication: ATRIAL FIBRILLATION
     Dosage: 400MG TWICE PER DAY
     Route: 048
     Dates: start: 20120816, end: 20120821
  48. LEVOFLOXACIN [Concomitant]
     Indication: PERITONSILLAR ABSCESS
     Dosage: 750MG PER DAY
     Route: 042
     Dates: start: 20120819, end: 20120821
  49. INSULIN GLARGINE [Concomitant]
     Indication: BLOOD GLUCOSE INCREASED
     Dosage: 12UNIT AT NIGHT
     Route: 058
     Dates: start: 20120817, end: 20120821
  50. INSULIN LISPRO [Concomitant]
     Indication: BLOOD GLUCOSE INCREASED
     Dosage: 2UNIT SIX TIMES PER DAY
     Route: 058
     Dates: start: 20120817, end: 20120821

REACTIONS (1)
  - Peritonsillar abscess [Recovered/Resolved]
